FAERS Safety Report 23792753 (Version 9)
Quarter: 2025Q2

REPORT INFORMATION
  Report Type: Spontaneous
  Country: US (occurrence: US)
  Receive Date: 20240429
  Receipt Date: 20250605
  Transmission Date: 20250716
  Serious: Yes (Other)
  Sender: SANOFI AVENTIS
  Company Number: US-SA-SAC20240420000274

PATIENT
  Age: 46 Year
  Sex: Female

DRUGS (4)
  1. DUPIXENT [Suspect]
     Active Substance: DUPILUMAB
     Indication: Asthma
     Dosage: 300 MG, QOW
     Route: 058
     Dates: start: 20231121
  2. DUPIXENT [Suspect]
     Active Substance: DUPILUMAB
     Dosage: 300 MG, QM
     Route: 058
  3. DUPIXENT [Suspect]
     Active Substance: DUPILUMAB
     Dosage: 300 MG, QOW
     Route: 058
  4. PREDNISONE [Concomitant]
     Active Substance: PREDNISONE

REACTIONS (17)
  - Pulmonary congestion [Not Recovered/Not Resolved]
  - Impaired quality of life [Not Recovered/Not Resolved]
  - Mobility decreased [Unknown]
  - Depressed mood [Not Recovered/Not Resolved]
  - Decreased activity [Not Recovered/Not Resolved]
  - Ear pain [Unknown]
  - Menstrual disorder [Unknown]
  - Nasal dryness [Unknown]
  - Back pain [Unknown]
  - Injection site reaction [Unknown]
  - Asthma [Not Recovered/Not Resolved]
  - Drug ineffective [Not Recovered/Not Resolved]
  - Arthralgia [Unknown]
  - Dry eye [Unknown]
  - Eye irritation [Unknown]
  - Inappropriate schedule of product administration [Unknown]
  - Product storage error [Unknown]

NARRATIVE: CASE EVENT DATE: 20240301
